FAERS Safety Report 7689690-8 (Version None)
Quarter: 2011Q3

REPORT INFORMATION
  Report Type: 
  Country: None (occurrence: None)
  Receive Date: 20110817
  Receipt Date: 20110802
  Transmission Date: 20111222
  Serious: Yes (Other)
  Sender: FDA-Public Use
  Company Number: US-ASTRAZENECA-2011SE46326

PATIENT

DRUGS (1)
  1. NEXIUM [Suspect]
     Indication: PANCREATIC CARCINOMA
     Route: 048

REACTIONS (2)
  - OFF LABEL USE [None]
  - PANCREATIC CARCINOMA [None]
